FAERS Safety Report 9288481 (Version 1)
Quarter: 2013Q2

REPORT INFORMATION
  Report Type: Spontaneous
  Country: HR (occurrence: HR)
  Receive Date: 20130514
  Receipt Date: 20130514
  Transmission Date: 20140414
  Serious: Yes (Hospitalization)
  Sender: FDA-Public Use
  Company Number: PHHY2013HR045962

PATIENT
  Age: 53 Year
  Sex: Female

DRUGS (1)
  1. QUETIAPINE [Suspect]
     Indication: PSYCHOTIC DISORDER
     Dosage: 100 MG, QD
     Route: 048

REACTIONS (10)
  - Acute generalised exanthematous pustulosis [Recovered/Resolved]
  - Macule [Recovered/Resolved]
  - Generalised erythema [Recovered/Resolved]
  - Skin exfoliation [Recovered/Resolved]
  - Rash pustular [Recovered/Resolved]
  - Pseudomonas infection [Recovered/Resolved]
  - Staphylococcal infection [Recovered/Resolved]
  - Skin oedema [Recovered/Resolved]
  - White blood cell count increased [Recovered/Resolved]
  - Pruritus [Recovered/Resolved]
